FAERS Safety Report 6621514-X (Version None)
Quarter: 2010Q1

REPORT INFORMATION
  Report Type: 
  Country: None (occurrence: None)
  Receive Date: 20100223
  Receipt Date: 20091117
  Transmission Date: 20100710
  Serious: No
  Sender: FDA-Public Use
  Company Number: 8054991

PATIENT
  Sex: Female
  Weight: 46.2 kg

DRUGS (6)
  1. CERTOLIZUMAB PEGOL (UCB, INC) [Suspect]
     Indication: CROHN'S DISEASE
     Dosage: SUBCUTANEOUS
     Route: 058
  2. BENTYL [Concomitant]
  3. PHENOBARBITAL [Concomitant]
  4. HYDROCODONE [Concomitant]
  5. PROMETHAZINE [Concomitant]
  6. LOMOTIL [Concomitant]

REACTIONS (3)
  - CONTUSION [None]
  - PAIN IN EXTREMITY [None]
  - SWELLING [None]
